FAERS Safety Report 7581488 (Version 6)
Quarter: 2013Q1

REPORT INFORMATION
  Report Type: Report from Study
  Country: JP (occurrence: JP)
  Receive Date: 20100912
  Receipt Date: 20130206
  Transmission Date: 20140127
  Serious: Yes (Death, Hospitalization)
  Sender: FDA-Public Use
  Company Number: JP-JNJFOC-20100902164

PATIENT
  Age: 62 Year
  Sex: Male
  Weight: 67 kg

DRUGS (10)
  1. REMICADE [Suspect]
     Indication: PUSTULAR PSORIASIS
     Route: 042
     Dates: start: 20100413
  2. REMICADE [Suspect]
     Indication: PUSTULAR PSORIASIS
     Route: 042
     Dates: start: 20100329
  3. REMICADE [Suspect]
     Indication: PUSTULAR PSORIASIS
     Route: 042
     Dates: start: 20100511
  4. MYSER [Concomitant]
     Indication: PUSTULAR PSORIASIS
     Dates: start: 20091222, end: 20100412
  5. MYSER [Concomitant]
     Indication: PUSTULAR PSORIASIS
     Dates: start: 20100427
  6. ISCOTIN [Concomitant]
     Indication: ANTIBIOTIC PROPHYLAXIS
     Route: 048
     Dates: start: 20100316, end: 20100622
  7. ETRETINATE [Concomitant]
     Indication: PUSTULAR PSORIASIS
     Route: 048
  8. RINDERON-DP [Concomitant]
  9. PYDOXAL [Concomitant]
     Indication: PROPHYLAXIS
     Route: 048
     Dates: start: 20100316, end: 20100622
  10. ALLELOCK [Concomitant]
     Indication: PUSTULAR PSORIASIS
     Route: 048
     Dates: end: 20100622

REACTIONS (1)
  - Colon cancer metastatic [Fatal]
